FAERS Safety Report 9990691 (Version 1)
Quarter: 2014Q1

REPORT INFORMATION
  Report Type: Report from Study
  Country: US (occurrence: US)
  Receive Date: 20140310
  Receipt Date: 20140310
  Transmission Date: 20141002
  Serious: No
  Sender: FDA-Public Use
  Company Number: US-ABBVIE-13P-163-1137174-00

PATIENT
  Age: 58 Year
  Sex: Female

DRUGS (6)
  1. HUMIRA [Suspect]
     Indication: RHEUMATOID ARTHRITIS
     Dates: start: 201304
  2. LEFLUNOMIDE [Concomitant]
     Indication: RHEUMATOID ARTHRITIS
     Dosage: BEDTIME
  3. TRAMADOL [Concomitant]
     Indication: PAIN
  4. VENLAFAXINE [Concomitant]
     Indication: DEPRESSION
     Dosage: 37.5MG DAILY
  5. INHALER [Concomitant]
     Indication: ASTHMA
     Dosage: DAILY
  6. INHALER [Concomitant]
     Indication: PRODUCT USED FOR UNKNOWN INDICATION

REACTIONS (5)
  - Incorrect drug administration duration [Unknown]
  - Incorrect product storage [Unknown]
  - Arthralgia [Not Recovered/Not Resolved]
  - Pain in extremity [Not Recovered/Not Resolved]
  - Pain in extremity [Not Recovered/Not Resolved]
